FAERS Safety Report 4664205-7 (Version None)
Quarter: 2005Q2

REPORT INFORMATION
  Report Type: 
  Country: None (occurrence: None)
  Receive Date: 20050516
  Receipt Date: 20050516
  Transmission Date: 20051028
  Serious: No
  Sender: FDA-Public Use
  Company Number: None

PATIENT
  Age: 80 Year
  Sex: Male
  Weight: 68.9467 kg

DRUGS (2)
  1. NPH INSULIN [Suspect]
     Indication: HYPERGLYCAEMIA
     Dosage: 80  UNITS BID
     Dates: start: 20050301, end: 20050302
  2. NPH INSULIN [Suspect]
     Indication: HYPERGLYCAEMIA
     Dosage: 80  UNITS BID
     Dates: start: 20050303, end: 20050304

REACTIONS (2)
  - HYPERHIDROSIS [None]
  - HYPOGLYCAEMIA [None]
